FAERS Safety Report 8329241-8 (Version None)
Quarter: 2012Q2

REPORT INFORMATION
  Report Type: 
  Country: None (occurrence: None)
  Receive Date: 20120502
  Receipt Date: 20120420
  Transmission Date: 20120825
  Serious: No
  Sender: FDA-Public Use
  Company Number: FR-JNJFOC-20120410661

PATIENT
  Age: 6 Decade
  Sex: Female

DRUGS (3)
  1. OXYCODONE HCL [Concomitant]
     Indication: ILL-DEFINED DISORDER
     Route: 048
  2. DURAGESIC-100 [Suspect]
     Indication: ILL-DEFINED DISORDER
     Route: 062
  3. DURAGESIC-100 [Suspect]
     Route: 062
     Dates: start: 20120401

REACTIONS (2)
  - DRUG PRESCRIBING ERROR [None]
  - OFF LABEL USE [None]
